FAERS Safety Report 10403661 (Version 1)
Quarter: 2014Q3

REPORT INFORMATION
  Report Type: Spontaneous
  Country: US (occurrence: US)
  Receive Date: 20140822
  Receipt Date: 20140822
  Transmission Date: 20150326
  Serious: No
  Sender: FDA-Public Use
  Company Number: US-TARO-2013P1020646

PATIENT
  Sex: Male
  Weight: 136.08 kg

DRUGS (3)
  1. CLOBETASOL PROPIONATE CREAM USP 0.05% [Suspect]
     Active Substance: CLOBETASOL PROPIONATE
     Indication: PSORIASIS
     Route: 061
  2. LEVOTHYROXINE [Concomitant]
     Active Substance: LEVOTHYROXINE
  3. LISINOPRIL. [Concomitant]
     Active Substance: LISINOPRIL

REACTIONS (7)
  - Drug ineffective [Unknown]
  - Wound secretion [Unknown]
  - Skin atrophy [Unknown]
  - Chemical injury [Not Recovered/Not Resolved]
  - Blister [Unknown]
  - Skin disorder [Unknown]
  - Application site erythema [Unknown]
